FAERS Safety Report 7965867-9 (Version None)
Quarter: 2011Q4

REPORT INFORMATION
  Report Type: 
  Country: None (occurrence: None)
  Receive Date: 20111208
  Receipt Date: 20111201
  Transmission Date: 20120403
  Serious: Yes (Other)
  Sender: FDA-Public Use
  Company Number: CA-GLAXOSMITHKLINE-A0911271A

PATIENT
  Sex: Female

DRUGS (2)
  1. TYKERB [Suspect]
     Indication: BREAST CANCER
     Dosage: 1250MG PER DAY
     Route: 048
     Dates: start: 20100824, end: 20111101
  2. XELODA [Suspect]
     Indication: PRODUCT USED FOR UNKNOWN INDICATION
     Dates: end: 20111101

REACTIONS (7)
  - FATIGUE [None]
  - SKIN CHAPPED [None]
  - NAIL DISORDER [None]
  - RECURRENT CANCER [None]
  - ARTHRALGIA [None]
  - BONE NEOPLASM [None]
  - METASTASES TO BONE [None]
